FAERS Safety Report 5518111-6 (Version None)
Quarter: 2007Q4

REPORT INFORMATION
  Report Type: 
  Country: None (occurrence: None)
  Receive Date: 20071113
  Receipt Date: 20071102
  Transmission Date: 20080405
  Serious: Yes (Hospitalization)
  Sender: FDA-Public Use
  Company Number: 6039142

PATIENT
  Age: 88 Year
  Sex: Female

DRUGS (10)
  1. BISOPROLOL FUMARATE [Suspect]
     Indication: DRUG USE FOR UNKNOWN INDICATION
     Dosage: 0,5 DOSAGE ORAL
     Route: 048
     Dates: end: 20070914
  2. EUPRESSYL  (URAPIDIL) [Suspect]
     Indication: DRUG USE FOR UNKNOWN INDICATION
     Dosage: 2 DOSAGE FORMS (2 DOSAGE FORMS, 1 D) ORAL
     Route: 048
     Dates: end: 20070914
  3. NICARDIPINE HCL [Suspect]
     Indication: DRUG USE FOR UNKNOWN INDICATION
     Dosage: 2 DOSAGE FORMS (2 DOSAGE FORMS, 1 D) ORAL
     Route: 048
     Dates: end: 20070914
  4. EFFEXOR [Suspect]
     Indication: DRUG USE FOR UNKNOWN INDICATION
     Dosage: 2 DOSAGE FORMS (2 DOSAGE FORMS, 1 D) ORAL
     Route: 048
     Dates: end: 20070914
  5. VALIUM [Suspect]
     Indication: DRUG USE FOR UNKNOWN INDICATION
     Dosage: 1 DOSAGE FORMS (1 DOSAGE FORMS, 1 D) ORAL
     Route: 048
     Dates: end: 20070914
  6. POTASSIUM CHLORIDE [Concomitant]
  7. FOSAMAX [Suspect]
  8. KARGECIC (160 MG, POWDER FOR ORAL SOLUTION) (ACETYLSALICYLATE LYSINE) [Concomitant]
  9. STABLON (12,5 MG, TABLET) (TIANEPTINE) [Concomitant]
  10. DIGOXIN [Concomitant]

REACTIONS (10)
  - ANAEMIA [None]
  - BALANCE DISORDER [None]
  - BLOOD PRESSURE SYSTOLIC INCREASED [None]
  - ESCHERICHIA URINARY TRACT INFECTION [None]
  - EXTRADURAL HAEMATOMA [None]
  - EXTRASYSTOLES [None]
  - FALL [None]
  - ORTHOSTATIC HYPOTENSION [None]
  - PERIORBITAL HAEMATOMA [None]
  - WRIST FRACTURE [None]
